FAERS Safety Report 4552478-0 (Version None)
Quarter: 2005Q1

REPORT INFORMATION
  Report Type: 
  Country: None (occurrence: None)
  Receive Date: 20050114
  Receipt Date: 20040602
  Transmission Date: 20050727
  Serious: Yes (Death)
  Sender: FDA-Public Use
  Company Number: US-BRISTOL-MYERS SQUIBB COMPANY-12602512

PATIENT
  Age: 65 Year
  Sex: Female

DRUGS (8)
  1. ENKAID [Suspect]
     Indication: VENTRICULAR TACHYCARDIA
     Route: 048
     Dates: start: 19870901, end: 20040403
  2. SYNTHROID [Concomitant]
     Dates: end: 20040403
  3. LANOXIN [Concomitant]
     Dates: end: 20040403
  4. LESCOL [Concomitant]
     Dates: end: 20040403
  5. DOXEPIN HCL [Concomitant]
     Dates: end: 20040403
  6. HYOSCYAMINE SULFATE [Concomitant]
     Dates: end: 20040403
  7. COLESTID [Concomitant]
     Dates: end: 20040403
  8. PREVACID [Concomitant]
     Dates: end: 20040403

REACTIONS (2)
  - DEATH [None]
  - SYNCOPE [None]
